FAERS Safety Report 4331836-3 (Version None)
Quarter: 2004Q2

REPORT INFORMATION
  Report Type: 
  Country: None (occurrence: None)
  Receive Date: 20040405
  Receipt Date: 20031107
  Transmission Date: 20050107
  Serious: Yes (Other)
  Sender: FDA-Public Use
  Company Number: US-GLAXOSMITHKLINE-A0438829A

PATIENT
  Age: 8 Year
  Sex: Female
  Weight: 23 kg

DRUGS (3)
  1. FLOVENT [Suspect]
     Indication: ASTHMA
     Dosage: 220MCG TWICE PER DAY
     Route: 055
  2. ALBUTEROL [Concomitant]
  3. ZYRTEC [Concomitant]

REACTIONS (4)
  - BLOOD CORTISOL DECREASED [None]
  - CUSHING'S SYNDROME [None]
  - FACE OEDEMA [None]
  - GROWTH RETARDATION [None]
